FAERS Safety Report 4989325-9 (Version None)
Quarter: 2006Q2

REPORT INFORMATION
  Report Type: 
  Country: None (occurrence: None)
  Receive Date: 20060426
  Receipt Date: 20060417
  Transmission Date: 20061013
  Serious: Yes (Other)
  Sender: FDA-Public Use
  Company Number: 2006-04-1100

PATIENT
  Sex: Female

DRUGS (1)
  1. TEMODAL [Suspect]
     Dosage: ORAL  1 CYCLE (S)
     Route: 048

REACTIONS (1)
  - HEPATIC FAILURE [None]
